FAERS Safety Report 16369277 (Version 1)
Quarter: 2019Q2

REPORT INFORMATION
  Report Type: Report from Study
  Country: CA (occurrence: CA)
  Receive Date: 20190529
  Receipt Date: 20190529
  Transmission Date: 20190711
  Serious: Yes (Hospitalization)
  Sender: FDA-Public Use
  Company Number: CA-HLSUS-2019-CA-000571

PATIENT
  Sex: Female

DRUGS (1)
  1. CLOZARIL [Suspect]
     Active Substance: CLOZAPINE
     Indication: BIPOLAR DISORDER
     Route: 048
     Dates: start: 20140317

REACTIONS (7)
  - Weight decreased [Unknown]
  - Bronchitis [Unknown]
  - Infection [Unknown]
  - Adrenal insufficiency [Unknown]
  - Pyelonephritis [Unknown]
  - Malnutrition [Unknown]
  - Gastrointestinal disorder [Unknown]
